FAERS Safety Report 9783800 (Version 4)
Quarter: 2014Q1

REPORT INFORMATION
  Report Type: Spontaneous
  Country: US (occurrence: US)
  Receive Date: 20131226
  Receipt Date: 20140219
  Transmission Date: 20141002
  Serious: No
  Sender: FDA-Public Use
  Company Number: US-PFIZER INC-2013366301

PATIENT
  Age: 77 Year
  Sex: Female
  Weight: 59.86 kg

DRUGS (2)
  1. ADVIL ALLERGY AND CONGESTION RELIEF [Suspect]
     Indication: NASAL CONGESTION
     Dosage: UNK, ONCE
     Dates: start: 20131219, end: 20131219
  2. AMLODIPINE [Concomitant]
     Indication: HYPERTENSION
     Dosage: 2.5 MG, DAILY

REACTIONS (7)
  - Drug ineffective [Recovered/Resolved]
  - Dizziness [Recovered/Resolved]
  - Heart rate increased [Recovered/Resolved]
  - Anxiety [Recovered/Resolved]
  - Diarrhoea [Recovered/Resolved]
  - Malaise [Recovered/Resolved]
  - Insomnia [Recovered/Resolved]
